FAERS Safety Report 18259953 (Version 1)
Quarter: 2020Q3

REPORT INFORMATION
  Report Type: Report from Study
  Country: US (occurrence: US)
  Receive Date: 20200912
  Receipt Date: 20200912
  Transmission Date: 20201103
  Serious: Yes (Hospitalization)
  Sender: FDA-Public Use
  Company Number: US-JNJFOC-A-NJ2017-151124

PATIENT
  Age: 41 Year
  Sex: Female
  Weight: 45.4 kg

DRUGS (6)
  1. VELETRI [Suspect]
     Active Substance: EPOPROSTENOL
     Dosage: UNK
     Route: 042
  2. VELETRI [Suspect]
     Active Substance: EPOPROSTENOL
     Dosage: 97 NG/KG, PER MIN
     Route: 042
  3. VELETRI [Suspect]
     Active Substance: EPOPROSTENOL
     Indication: PULMONARY ARTERIAL HYPERTENSION
     Dosage: 97 NG/KG, PER MIN
     Route: 042
  4. OPSUMIT [Concomitant]
     Active Substance: MACITENTAN
  5. ADCIRCA [Concomitant]
     Active Substance: TADALAFIL
  6. ELIQUIS [Concomitant]
     Active Substance: APIXABAN

REACTIONS (27)
  - Catheter site haemorrhage [Unknown]
  - Pain in jaw [Unknown]
  - Chest pain [Unknown]
  - Catheter site pruritus [Not Recovered/Not Resolved]
  - Dyspnoea [Unknown]
  - Device leakage [Unknown]
  - Central venous catheterisation [Unknown]
  - Rash [Unknown]
  - Catheter management [Unknown]
  - Catheter site rash [Not Recovered/Not Resolved]
  - Palpitations [Unknown]
  - Dyspnoea exertional [Unknown]
  - Feeling abnormal [Unknown]
  - Chest discomfort [Unknown]
  - Catheter site irritation [Unknown]
  - Diarrhoea [Unknown]
  - Pulmonary hypertension [Unknown]
  - Device occlusion [Unknown]
  - Device infusion issue [Unknown]
  - Pulmonary arterial hypertension [Unknown]
  - Catheter site swelling [Unknown]
  - Catheter site discharge [Unknown]
  - Headache [Unknown]
  - Flushing [Unknown]
  - Catheter site erythema [Unknown]
  - Dizziness [Unknown]
  - Blood pressure decreased [Unknown]

NARRATIVE: CASE EVENT DATE: 201704
